FAERS Safety Report 4396984-0 (Version None)
Quarter: 2004Q3

REPORT INFORMATION
  Report Type: 
  Country: None (occurrence: None)
  Receive Date: 20040713
  Receipt Date: 20040713
  Transmission Date: 20050211
  Serious: Yes (Hospitalization)
  Sender: FDA-Public Use
  Company Number: None

PATIENT
  Sex: Female
  Weight: 67.5 kg

DRUGS (2)
  1. LEVAQUIN [Suspect]
     Indication: WOUND
     Dosage: 500 MG Q DAY ORAL
     Route: 048
     Dates: start: 20040517, end: 20040521
  2. TETNUS SHOT [Concomitant]

REACTIONS (36)
  - ABDOMINAL PAIN UPPER [None]
  - ASTHENIA [None]
  - BLOOD CALCIUM DECREASED [None]
  - BLOOD POTASSIUM DECREASED [None]
  - CHILLS [None]
  - CONSTIPATION [None]
  - DIZZINESS [None]
  - DRUG INTERACTION [None]
  - EAR DISORDER [None]
  - EARLY SATIETY [None]
  - ERYTHEMA [None]
  - EYE DISORDER [None]
  - FATIGUE [None]
  - FEELING ABNORMAL [None]
  - GINGIVITIS [None]
  - HEADACHE [None]
  - IMMUNE SYSTEM DISORDER [None]
  - INFECTIOUS MONONUCLEOSIS [None]
  - LYMPHADENOPATHY [None]
  - MALAISE [None]
  - MASS [None]
  - NAUSEA [None]
  - NIGHT SWEATS [None]
  - ORAL DISCOMFORT [None]
  - PALLOR [None]
  - PYREXIA [None]
  - RASH MACULO-PAPULAR [None]
  - RASH PRURITIC [None]
  - RETCHING [None]
  - SINUS HEADACHE [None]
  - SINUSITIS [None]
  - SWELLING FACE [None]
  - THROMBOCYTOPENIA [None]
  - TOOTH DISORDER [None]
  - TYMPANIC MEMBRANE DISORDER [None]
  - X-RAY LIMB ABNORMAL [None]
